FAERS Safety Report 9239246 (Version 3)
Quarter: 2013Q4

REPORT INFORMATION
  Report Type: Spontaneous
  Country: IT (occurrence: IT)
  Receive Date: 20130418
  Receipt Date: 20131213
  Transmission Date: 20140711
  Serious: Yes (Death, Other)
  Sender: FDA-Public Use
  Company Number: IT-CELGENEUS-083-21880-13041389

PATIENT
  Age: 64 Year
  Sex: 0

DRUGS (2)
  1. REVLIMID [Suspect]
     Indication: PLASMA CELL MYELOMA
     Route: 048
  2. REVLIMID [Suspect]
     Indication: AMYLOIDOSIS
     Route: 048

REACTIONS (4)
  - Plasma cell myeloma [Fatal]
  - Renal impairment [Unknown]
  - General physical health deterioration [Unknown]
  - Diarrhoea [Unknown]
